FAERS Safety Report 25902778 (Version 1)
Quarter: 2025Q4

REPORT INFORMATION
  Report Type: Spontaneous
  Country: CN (occurrence: CN)
  Receive Date: 20251009
  Receipt Date: 20251009
  Transmission Date: 20260117
  Serious: Yes (Other)
  Sender: COSETTE PHARMACEUTICALS INC
  Company Number: CN-SA-2025SA288919

PATIENT
  Age: 27 Year
  Sex: Male
  Weight: 65 kg

DRUGS (2)
  1. ZOLPIDEM TARTRATE [Suspect]
     Active Substance: ZOLPIDEM TARTRATE
     Indication: Intentional self-injury
     Route: 048
     Dates: start: 20250904, end: 20250904
  2. ZOLPIDEM TARTRATE [Suspect]
     Active Substance: ZOLPIDEM TARTRATE
     Indication: Mood altered
     Route: 065
     Dates: start: 202509

REACTIONS (8)
  - Electrocardiogram QT prolonged [Recovering/Resolving]
  - Sinus tachycardia [Recovering/Resolving]
  - Toxicity to various agents [Recovering/Resolving]
  - Self-induced vomiting [Recovered/Resolved]
  - Dizziness [Not Recovered/Not Resolved]
  - Somnolence [Not Recovered/Not Resolved]
  - Asthenia [Not Recovered/Not Resolved]
  - Intentional overdose [Unknown]

NARRATIVE: CASE EVENT DATE: 20250904
